FAERS Safety Report 6222498-9 (Version None)
Quarter: 2009Q2

REPORT INFORMATION
  Report Type: 
  Country: None (occurrence: None)
  Receive Date: 20090608
  Receipt Date: 20090602
  Transmission Date: 20091009
  Serious: Yes (Hospitalization)
  Sender: FDA-Public Use
  Company Number: US-GENENTECH-284247

PATIENT
  Age: 47 Year
  Sex: Female
  Weight: 92.063 kg

DRUGS (3)
  1. AVASTIN [Suspect]
     Indication: OVARIAN CANCER RECURRENT
     Dosage: UNK
     Route: 042
     Dates: start: 20090201, end: 20090413
  2. CHEMOTHERAPY (UNK INGREDIENTS) [Concomitant]
     Indication: OVARIAN CANCER
     Dosage: UNK
  3. HYDROCODONE BITARTRATE + ACETAMINOPHEN [Concomitant]
     Indication: NEUROPATHY PERIPHERAL
     Dosage: UNK

REACTIONS (3)
  - RENAL FAILURE ACUTE [None]
  - THROMBOCYTOPENIA [None]
  - TRANSFUSION REACTION [None]
